FAERS Safety Report 6516989-0 (Version None)
Quarter: 2009Q4

REPORT INFORMATION
  Report Type: 
  Country: None (occurrence: None)
  Receive Date: 20091223
  Receipt Date: 20091214
  Transmission Date: 20100525
  Serious: Yes (Death, Hospitalization)
  Sender: FDA-Public Use
  Company Number: US-BAXTER-2009BH018840

PATIENT
  Age: 76 Year
  Sex: Male

DRUGS (1)
  1. DIANEAL [Suspect]
     Indication: PERITONEAL DIALYSIS
     Route: 033
     Dates: end: 20091101

REACTIONS (5)
  - NAUSEA [None]
  - PULMONARY OEDEMA [None]
  - THERAPY CESSATION [None]
  - ULTRAFILTRATION FAILURE [None]
  - VOMITING [None]
